FAERS Safety Report 10753852 (Version 1)
Quarter: 2015Q1

REPORT INFORMATION
  Report Type: Spontaneous
  Country: JP (occurrence: JP)
  Receive Date: 20150202
  Receipt Date: 20150202
  Transmission Date: 20150721
  Serious: Yes (Life-Threatening)
  Sender: FDA-Public Use
  Company Number: JP-ROCHE-1527765

PATIENT
  Age: 75 Year
  Sex: Female
  Weight: 45 kg

DRUGS (5)
  1. 5-FU [Concomitant]
     Active Substance: FLUOROURACIL
     Indication: RECTAL CANCER RECURRENT
     Route: 040
     Dates: start: 20130821, end: 20141114
  2. 5-FU [Concomitant]
     Active Substance: FLUOROURACIL
     Indication: RECTAL CANCER RECURRENT
     Route: 041
     Dates: start: 20130821, end: 20141114
  3. ELPLAT [Concomitant]
     Active Substance: OXALIPLATIN
     Indication: RECTAL CANCER RECURRENT
     Route: 041
     Dates: start: 20130821, end: 20141114
  4. AVASTIN [Suspect]
     Active Substance: BEVACIZUMAB
     Indication: RECTAL CANCER RECURRENT
     Route: 041
     Dates: start: 20130821, end: 20141114
  5. ISOVORIN [Concomitant]
     Active Substance: LEUCOVORIN CALCIUM
     Indication: RECTAL CANCER RECURRENT
     Route: 041
     Dates: start: 20130821, end: 20141114

REACTIONS (2)
  - Cardio-respiratory arrest [Recovered/Resolved]
  - Epistaxis [Recovered/Resolved]

NARRATIVE: CASE EVENT DATE: 20141130
